FAERS Safety Report 8744401 (Version 2)
Quarter: 2012Q4

REPORT INFORMATION
  Report Type: 
  Country: ZA (occurrence: ZA)
  Receive Date: 20120825
  Receipt Date: 20120909
  Transmission Date: 20130627
  Serious: Yes (Hospitalization)
  Sender: FDA-Public Use
  Company Number: ZA-ABBOTT-12P-143-0971029-00

PATIENT
  Age: 73 Year
  Sex: Female

DRUGS (4)
  1. KLACID XL [Suspect]
     Indication: PRODUCT USED FOR UNKNOWN INDICATION
     Dates: start: 20120805, end: 20120807
  2. RENITEC [Suspect]
     Indication: HYPERTENSION
  3. ASPAVOR [Concomitant]
     Indication: HYPERCHOLESTEROLAEMIA
     Dosage: 10 mg nocte
  4. ELTROXIN [Concomitant]
     Indication: HYPOTHYROIDISM

REACTIONS (11)
  - Ventricular extrasystoles [Unknown]
  - Dizziness [Unknown]
  - Confusional state [Unknown]
  - Disorientation [Unknown]
  - Fall [Unknown]
  - Loss of consciousness [Unknown]
  - Periorbital haematoma [Unknown]
  - Amnesia [Unknown]
  - Syncope [Unknown]
  - Hypotension [Unknown]
  - Convulsion [Unknown]
